FAERS Safety Report 9240063 (Version 1)
Quarter: 2013Q2

REPORT INFORMATION
  Report Type: Spontaneous
  Country: DE (occurrence: None)
  Receive Date: 20130417
  Receipt Date: 20130417
  Transmission Date: 20140414
  Serious: Yes (Death, Congenital Anomaly)
  Sender: FDA-Public Use
  Company Number: E2B-00000743

PATIENT
  Sex: 0
  Weight: .25 kg

DRUGS (9)
  1. LAMOTRIGINE [Suspect]
     Indication: EPILEPSY
     Dosage: 50-300 MG/D (UNKNOWN), TRANSPLACENTAL
     Route: 064
     Dates: start: 20080922, end: 20090206
  2. VALPROATE SODIUM [Suspect]
     Indication: EPILEPSY
     Route: 064
     Dates: start: 20080922, end: 20081231
  3. LEVETIRACETAM [Suspect]
     Indication: EPILEPSY
     Dates: start: 20080922, end: 20090213
  4. PHENYTOIN [Suspect]
     Indication: EPILEPSY
     Route: 064
     Dates: start: 20080922, end: 20090213
  5. CLOBAZAM [Suspect]
     Indication: EPILEPSY
     Route: 064
     Dates: start: 20080922, end: 20090213
  6. PHENOBARBITAL [Suspect]
     Indication: EPILEPSY
     Route: 064
     Dates: start: 20080922, end: 20090213
  7. LORAZEPAM [Suspect]
     Indication: SLEEP DISORDER
     Dosage: AS NEEDED
     Route: 064
  8. LACOSAMIDE (VIMPAT) [Concomitant]
  9. THYROXIN [Concomitant]

REACTIONS (8)
  - Spina bifida [None]
  - Cleft lip and palate [None]
  - Limb malformation [None]
  - Microcephaly [None]
  - Foetal growth restriction [None]
  - Brain malformation [None]
  - Foetal death [None]
  - Maternal drugs affecting foetus [None]
